FAERS Safety Report 7179517-5 (Version None)
Quarter: 2010Q4

REPORT INFORMATION
  Report Type: 
  Country: None (occurrence: None)
  Receive Date: 20101221
  Receipt Date: 20091227
  Transmission Date: 20110411
  Serious: Yes (Hospitalization)
  Sender: FDA-Public Use
  Company Number: SA-ROCHE-676522

PATIENT
  Age: 7 Year
  Sex: Female
  Weight: 27 kg

DRUGS (2)
  1. TAMIFLU [Suspect]
     Route: 048
     Dates: start: 20091110, end: 20091114
  2. IBUPROFEN [Concomitant]
     Dosage: FREQUENCY: 4 TIMES. ANALGESIC AND ANTIPYRETIC.
     Route: 048
     Dates: start: 20091110, end: 20091126

REACTIONS (2)
  - PLEURAL EFFUSION [None]
  - PNEUMONIA [None]
